FAERS Safety Report 12069863 (Version 1)
Quarter: 2016Q1

REPORT INFORMATION
  Report Type: Spontaneous
  Country: US (occurrence: US)
  Receive Date: 20160211
  Receipt Date: 20160211
  Transmission Date: 20160526
  Serious: No
  Sender: FDA-Public Use
  Company Number: US-ASTRAZENECA-2016SE10977

PATIENT
  Sex: Female

DRUGS (2)
  1. BRILINTA [Suspect]
     Active Substance: TICAGRELOR
     Indication: STENT PLACEMENT
     Route: 048
     Dates: start: 20160106
  2. ASPIRIN. [Concomitant]
     Active Substance: ASPIRIN
     Dates: start: 20160106

REACTIONS (4)
  - Headache [Unknown]
  - Dyspnoea [Unknown]
  - Epistaxis [Unknown]
  - Hypoaesthesia [Unknown]
